FAERS Safety Report 15085289 (Version 6)
Quarter: 2023Q2

REPORT INFORMATION
  Report Type: Report from Study
  Country: US (occurrence: US)
  Receive Date: 20180628
  Receipt Date: 20230602
  Transmission Date: 20230721
  Serious: Yes (Hospitalization, Other)
  Sender: FDA-Public Use
  Company Number: US-SHIRE-US201822420

PATIENT
  Sex: Female

DRUGS (5)
  1. VELAGLUCERASE ALFA [Suspect]
     Active Substance: VELAGLUCERASE ALFA
     Indication: Gaucher^s disease type I
     Dosage: UNK
     Route: 065
     Dates: start: 20101003
  2. VELAGLUCERASE ALFA [Suspect]
     Active Substance: VELAGLUCERASE ALFA
     Dosage: UNK
     Route: 065
     Dates: start: 20101008
  3. VELAGLUCERASE ALFA [Suspect]
     Active Substance: VELAGLUCERASE ALFA
     Dosage: UNK
     Route: 065
     Dates: start: 20120602
  4. VELAGLUCERASE ALFA [Suspect]
     Active Substance: VELAGLUCERASE ALFA
     Dosage: 13 DOSAGE FORM, 2/WEEK
     Route: 042
     Dates: start: 20160810
  5. IRON [Suspect]
     Active Substance: IRON
     Indication: Product used for unknown indication
     Route: 065

REACTIONS (15)
  - Hypoxia [Not Recovered/Not Resolved]
  - Anaemia [Not Recovered/Not Resolved]
  - Red blood cell count decreased [Not Recovered/Not Resolved]
  - Intervertebral disc protrusion [Not Recovered/Not Resolved]
  - Dysstasia [Not Recovered/Not Resolved]
  - Dyspnoea [Not Recovered/Not Resolved]
  - Bone infarction [Not Recovered/Not Resolved]
  - Pain [Not Recovered/Not Resolved]
  - Blood iron abnormal [Not Recovered/Not Resolved]
  - Chitotriosidase increased [Not Recovered/Not Resolved]
  - Drug ineffective [Unknown]
  - Arthralgia [Unknown]
  - Bone pain [Not Recovered/Not Resolved]
  - Fatigue [Not Recovered/Not Resolved]
  - Infusion related reaction [Not Recovered/Not Resolved]
